FAERS Safety Report 16103659 (Version 1)
Quarter: 2019Q1

REPORT INFORMATION
  Report Type: Spontaneous
  Country: FR (occurrence: FR)
  Receive Date: 20190322
  Receipt Date: 20190322
  Transmission Date: 20190418
  Serious: Yes (Other)
  Sender: FDA-Public Use
  Company Number: FR-SA-2019SA075681

PATIENT
  Age: 34 Year
  Sex: Male

DRUGS (1)
  1. ALEMTUZUMAB [Suspect]
     Active Substance: ALEMTUZUMAB
     Indication: MULTIPLE SCLEROSIS

REACTIONS (3)
  - Autoimmune haemolytic anaemia [Recovered/Resolved]
  - Albuminuria [Recovered/Resolved]
  - Nephropathy [Recovered/Resolved]
